FAERS Safety Report 8832882 (Version 1)
Quarter: 2012Q4

REPORT INFORMATION
  Report Type: 
  Country: US (occurrence: None)
  Receive Date: 20121009
  Receipt Date: 20121009
  Transmission Date: 20130627
  Serious: Yes (Death, Hospitalization)
  Sender: FDA-Public Use
  Company Number: None

PATIENT
  Sex: Female
  Weight: 69 kg

DRUGS (3)
  1. EPIRUBICIN [Suspect]
     Dates: end: 20071027
  2. 5-FLUOROURACIL [Suspect]
     Dates: end: 20071025
  3. CYCLOPHOSPHAMIDE [Suspect]
     Dates: end: 20071027

REACTIONS (6)
  - Pancytopenia [None]
  - Febrile neutropenia [None]
  - Escherichia urinary tract infection [None]
  - Pneumonia [None]
  - Graft versus host disease [None]
  - Hypotension [None]
